FAERS Safety Report 5950866-9 (Version None)
Quarter: 2008Q4

REPORT INFORMATION
  Report Type: 
  Country: None (occurrence: None)
  Receive Date: 20081110
  Receipt Date: 20081024
  Transmission Date: 20090506
  Serious: Yes (Hospitalization)
  Sender: FDA-Public Use
  Company Number: DSA_32606_2008

PATIENT
  Age: 62 Year
  Sex: Male

DRUGS (1)
  1. ENALAPRIL MALEATE [Suspect]
     Indication: HYPERTENSION
     Dosage: (DF)
     Dates: start: 19960101

REACTIONS (6)
  - CARDIAC DISORDER [None]
  - CARDIAC MURMUR [None]
  - DIAPHRAGMATIC HERNIA [None]
  - LIPOMA [None]
  - MEDIASTINAL DISORDER [None]
  - RESPIRATORY DISORDER [None]
